FAERS Safety Report 23376601 (Version 4)
Quarter: 2024Q2

REPORT INFORMATION
  Report Type: Spontaneous
  Country: US (occurrence: US)
  Receive Date: 20240108
  Receipt Date: 20240506
  Transmission Date: 20240715
  Serious: No
  Sender: FDA-Public Use
  Company Number: US-SA-SAC20240105000143

PATIENT
  Age: 69 Year
  Sex: Male

DRUGS (3)
  1. DUPIXENT [Suspect]
     Active Substance: DUPILUMAB
     Indication: Dermatitis atopic
     Dosage: 600 MG, 1X
     Route: 058
     Dates: start: 202312, end: 202312
  2. DUPIXENT [Suspect]
     Active Substance: DUPILUMAB
     Indication: Psoriasis
     Dosage: 300 MG, QOW
     Route: 058
  3. REXULTI [Concomitant]
     Active Substance: BREXPIPRAZOLE
     Dosage: UNK
     Route: 065
     Dates: start: 2023

REACTIONS (5)
  - Illness [Unknown]
  - Fall [Unknown]
  - Upper limb fracture [Unknown]
  - Product use in unapproved indication [Unknown]
  - Therapeutic response decreased [Unknown]

NARRATIVE: CASE EVENT DATE: 20231201
